FAERS Safety Report 5059362-7 (Version None)
Quarter: 2006Q3

REPORT INFORMATION
  Report Type: 
  Country: None (occurrence: None)
  Receive Date: 20060718
  Receipt Date: 20060629
  Transmission Date: 20061208
  Serious: Yes (Other)
  Sender: FDA-Public Use
  Company Number: CA200606004869

PATIENT
  Age: 82 Year
  Sex: Female

DRUGS (10)
  1. FORTEO [Suspect]
     Indication: OSTEOPOROSIS
     Dosage: 20 UG, DAILY (1/D), UNK
     Dates: start: 20060609
  2. FORTEO PEN (250MCG/ML) PEN, DISPOSABLE [Concomitant]
  3. ALTACE [Concomitant]
  4. FUROSEMIDE [Concomitant]
  5. SPIRONOLACTONE [Concomitant]
  6. LANOXIN [Concomitant]
  7. PREMARIN [Concomitant]
  8. TYLENOL    /USA/(PARACETAMOL) [Concomitant]
  9. CALCIUM (CALCIUM) [Concomitant]
  10. VITAMIN D [Concomitant]

REACTIONS (3)
  - DIARRHOEA [None]
  - DIZZINESS [None]
  - HYPOTENSION [None]
